FAERS Safety Report 6413019-6 (Version None)
Quarter: 2009Q4

REPORT INFORMATION
  Report Type: 
  Country: None (occurrence: None)
  Receive Date: 20091023
  Receipt Date: 20091023
  Transmission Date: 20100525
  Serious: No
  Sender: FDA-Public Use
  Company Number: None

PATIENT
  Sex: Female
  Weight: 64.4108 kg

DRUGS (12)
  1. ORENCIA [Suspect]
     Indication: RHEUMATOID ARTHRITIS
     Dosage: 750MG Q 4WKS IV
     Route: 042
  2. ORENCIA [Suspect]
  3. PROVENTIL-HFA [Concomitant]
  4. SYMBICORT [Concomitant]
  5. TRAMADOL HCL [Concomitant]
  6. FOLIC ACID [Concomitant]
  7. METHOTREXATE SODIUM [Concomitant]
  8. M.V.I. [Concomitant]
  9. PREVACID [Concomitant]
  10. EFFEXOR [Concomitant]
  11. BONIVA [Concomitant]
  12. LISINOPRIL [Concomitant]

REACTIONS (1)
  - PRURITUS GENERALISED [None]
